FAERS Safety Report 24343935 (Version 2)
Quarter: 2024Q4

REPORT INFORMATION
  Report Type: Spontaneous
  Country: AU (occurrence: AU)
  Receive Date: 20240920
  Receipt Date: 20241116
  Transmission Date: 20250115
  Serious: Yes (Hospitalization, Other)
  Sender: CELLTRION
  Company Number: AU-PFIZER INC-PV202400120245

PATIENT

DRUGS (1)
  1. INFLIXIMAB [Suspect]
     Active Substance: INFLIXIMAB
     Indication: Colitis ulcerative
     Dosage: 5MG/Q8
     Dates: start: 201907

REACTIONS (8)
  - Vulval abscess [Unknown]
  - Procedural nausea [Unknown]
  - Procedural vomiting [Unknown]
  - Ileostomy closure [Unknown]
  - Fibrosis [Unknown]
  - Anal fistula [Unknown]
  - Pouchitis [Unknown]
  - Off label use [Unknown]

NARRATIVE: CASE EVENT DATE: 20210301
